FAERS Safety Report 19114036 (Version 2)
Quarter: 2021Q2

REPORT INFORMATION
  Report Type: Spontaneous
  Country: CA (occurrence: CA)
  Receive Date: 20210408
  Receipt Date: 20210623
  Transmission Date: 20210717
  Serious: Yes (Other)
  Sender: FDA-Public Use
  Company Number: CA-TEVA-2021-CA-1898075

PATIENT
  Age: 40 Year
  Sex: Female

DRUGS (16)
  1. METHYLPREDNISOLONE. [Suspect]
     Active Substance: METHYLPREDNISOLONE
     Indication: COLITIS ULCERATIVE
     Route: 042
  2. 6?MERCAPTOPURINE [Suspect]
     Active Substance: MERCAPTOPURINE
     Indication: COLITIS ULCERATIVE
     Route: 065
  3. PREDNISONE. [Suspect]
     Active Substance: PREDNISONE
     Indication: COLITIS ULCERATIVE
     Dosage: 40?60 MG DAILY
     Route: 048
  4. ADALIMUMAB [Suspect]
     Active Substance: ADALIMUMAB
     Indication: COLITIS ULCERATIVE
     Dosage: INITIAL DOSAGE NOT STATED; LATER RECEIVED 80MG WEEKLY
     Route: 065
     Dates: start: 2014
  5. TOFACITINIB [Suspect]
     Active Substance: TOFACITINIB
     Indication: COLITIS ULCERATIVE
     Dosage: 20 MILLIGRAM DAILY;
     Route: 048
     Dates: start: 201610
  6. INFLIXIMAB [Suspect]
     Active Substance: INFLIXIMAB
     Indication: COLITIS ULCERATIVE
     Route: 065
     Dates: start: 2012, end: 2013
  7. CORTISONE [Suspect]
     Active Substance: CORTISONE
     Indication: PRODUCT USED FOR UNKNOWN INDICATION
     Route: 065
  8. TENOFOVIR DISOPROXIL/EMTRACITABINE [Concomitant]
     Indication: HIV INFECTION
     Dosage: DAILY
     Route: 048
  9. RALTEGRAVIR. [Concomitant]
     Active Substance: RALTEGRAVIR
     Indication: HIV INFECTION
     Dosage: 800 MILLIGRAM DAILY;
     Route: 048
     Dates: start: 2012
  10. MESALAMINE. [Suspect]
     Active Substance: MESALAMINE
     Route: 054
  11. VEDOLIZUMAB [Suspect]
     Active Substance: VEDOLIZUMAB
     Indication: COLITIS ULCERATIVE
     Dosage: 300MG AT WEEKS 0 AND 2, 6 AS LOADING DOSE
     Route: 042
     Dates: start: 201512
  12. MESALAMINE. [Suspect]
     Active Substance: MESALAMINE
     Dosage: MESALAZINE ENEMAS
     Route: 054
  13. VEDOLIZUMAB [Suspect]
     Active Substance: VEDOLIZUMAB
     Dosage: 300MG EVERY 8 WEEKS AS MAINTENANCE DOSE
     Route: 042
  14. MESALAMINE. [Suspect]
     Active Substance: MESALAMINE
     Indication: COLITIS ULCERATIVE
     Route: 048
  15. PREDNISOLONE. [Suspect]
     Active Substance: PREDNISOLONE
     Indication: COLITIS ULCERATIVE
     Route: 042
  16. USTEKINUMAB [Suspect]
     Active Substance: USTEKINUMAB
     Indication: COLITIS ULCERATIVE
     Route: 065
     Dates: start: 201703, end: 201709

REACTIONS (11)
  - Bacterial vulvovaginitis [Unknown]
  - Bacillus infection [Unknown]
  - Weight increased [Unknown]
  - Drug ineffective [Unknown]
  - Cushingoid [Unknown]
  - Escherichia infection [Unknown]
  - Furuncle [Unknown]
  - Central obesity [Unknown]
  - Cataract [Unknown]
  - Colitis ulcerative [Recovering/Resolving]
  - Cellulitis [Unknown]
